FAERS Safety Report 5828044-3 (Version None)
Quarter: 2008Q3

REPORT INFORMATION
  Report Type: 
  Country: None (occurrence: None)
  Receive Date: 20080730
  Receipt Date: 20071012
  Transmission Date: 20090109
  Serious: No
  Sender: FDA-Public Use
  Company Number: A0688045A

PATIENT
  Age: 56 Year
  Sex: Male
  Weight: 87.3 kg

DRUGS (6)
  1. ZANTAC [Suspect]
     Route: 065
  2. PROVIGIL [Suspect]
     Indication: NARCOLEPSY
     Dosage: 400MG THREE TIMES PER DAY
     Route: 048
  3. PREDNISONE [Concomitant]
     Route: 065
     Dates: start: 20030101
  4. ADDERALL 10 [Concomitant]
     Route: 065
     Dates: start: 20010101
  5. METHOTREXATE [Concomitant]
     Route: 065
     Dates: start: 20010101
  6. UNKNOWN [Concomitant]
     Route: 065
     Dates: start: 20040101

REACTIONS (1)
  - THERAPEUTIC RESPONSE DECREASED [None]
